FAERS Safety Report 6217630-7 (Version None)
Quarter: 2009Q2

REPORT INFORMATION
  Report Type: 
  Country: None (occurrence: None)
  Receive Date: 20090608
  Receipt Date: 20090511
  Transmission Date: 20091009
  Serious: No
  Sender: FDA-Public Use
  Company Number: A0781541A

PATIENT
  Age: 62 Year
  Sex: Female

DRUGS (11)
  1. WELLBUTRIN [Suspect]
     Indication: DEPRESSION
     Dosage: 300MG PER DAY
     Route: 048
     Dates: start: 20090506, end: 20090511
  2. PAXIL [Suspect]
     Indication: ANXIETY DISORDER
     Route: 048
     Dates: start: 19990101, end: 20000101
  3. XANAX [Concomitant]
  4. ACTONEL [Concomitant]
  5. MULTI-VITAMIN [Concomitant]
  6. VITAMIN D CALCIUM [Concomitant]
  7. MAGNESIUM SULFATE [Concomitant]
  8. VITAMIN B COMPLEX CAP [Concomitant]
  9. FISH OIL [Concomitant]
  10. METAMUCIL [Concomitant]
  11. BENADRYL [Concomitant]

REACTIONS (12)
  - ANOREXIA [None]
  - ANXIETY [None]
  - CONSTIPATION [None]
  - DYSPEPSIA [None]
  - FEELING OF RELAXATION [None]
  - FLATULENCE [None]
  - HEART RATE INCREASED [None]
  - INSOMNIA [None]
  - NAUSEA [None]
  - POSTNASAL DRIP [None]
  - SOMNOLENCE [None]
  - TINNITUS [None]
